FAERS Safety Report 5616027-8 (Version None)
Quarter: 2008Q1

REPORT INFORMATION
  Report Type: 
  Country: None (occurrence: None)
  Receive Date: 20080206
  Receipt Date: 20080131
  Transmission Date: 20080703
  Serious: Yes (Hospitalization)
  Sender: FDA-Public Use
  Company Number: US-PFIZER INC-2006028682

PATIENT
  Sex: Female
  Weight: 73 kg

DRUGS (13)
  1. SUTENT [Suspect]
     Indication: RENAL CELL CARCINOMA
     Route: 048
     Dates: start: 20050830, end: 20060110
  2. SUTENT [Suspect]
     Route: 048
  3. ALPHA LIPOIC ACID [Concomitant]
     Route: 048
  4. CALCIUM GLUCONATE [Concomitant]
     Route: 048
  5. FLAXSEED OIL [Concomitant]
     Route: 048
  6. GINGER [Concomitant]
     Route: 048
  7. VITAMIN CAP [Concomitant]
     Route: 048
  8. SYNTHROID [Concomitant]
     Route: 048
  9. VITAMIN E [Concomitant]
     Route: 048
  10. LEVAQUIN [Concomitant]
     Route: 048
  11. PROTONIX [Concomitant]
     Route: 048
  12. TEQUIN [Concomitant]
     Route: 048
  13. OXYGEN [Concomitant]
     Route: 048

REACTIONS (1)
  - PNEUMONITIS [None]
